FAERS Safety Report 6647740-1 (Version None)
Quarter: 2010Q1

REPORT INFORMATION
  Report Type: 
  Country: None (occurrence: None)
  Receive Date: 20100317
  Receipt Date: 20100305
  Transmission Date: 20100710
  Serious: Yes (Hospitalization)
  Sender: FDA-Public Use
  Company Number: 2010AP000449

PATIENT
  Age: 46 Year
  Sex: Female

DRUGS (8)
  1. MYCOPHENOLATE MOFETIL [Suspect]
     Indication: VASCULITIS
     Dosage: 2 GM;UNKNOWN;PO;QD
     Route: 048
     Dates: start: 20100201, end: 20100211
  2. ALENDRONIC ACID (ALENDRONIC ACID) [Concomitant]
  3. CALCIUM CARBONATE [Concomitant]
  4. CITALOPRAM HYDROBROMIDE [Concomitant]
  5. IBUPROFEN [Concomitant]
  6. OMEPRAZOLE [Concomitant]
  7. PREDNISOLONE [Concomitant]
  8. CARBAMAZEPINE [Concomitant]

REACTIONS (4)
  - ALOPECIA [None]
  - DYSPHONIA [None]
  - RASH ERYTHEMATOUS [None]
  - RASH GENERALISED [None]
